FAERS Safety Report 8969583 (Version 2)
Quarter: 2013Q1

REPORT INFORMATION
  Report Type: Spontaneous
  Country: FR (occurrence: FR)
  Receive Date: 20121218
  Receipt Date: 20130201
  Transmission Date: 20140127
  Serious: Yes (Hospitalization)
  Sender: FDA-Public Use
  Company Number: FR-GE HEALTHCARE MEDICAL DIAGNOSTICS-OMPQ-NO-1212S-1334

PATIENT
  Age: 62 Year
  Sex: Male

DRUGS (17)
  1. OMNIPAQUE [Suspect]
     Indication: PRODUCT USED FOR UNKNOWN INDICATION
     Route: 042
     Dates: start: 20120531, end: 20120531
  2. OMNIPAQUE [Suspect]
     Indication: DIAGNOSTIC PROCEDURE
  3. PROFENID [Suspect]
     Route: 042
     Dates: start: 20120525, end: 20120526
  4. ATACAND [Suspect]
     Route: 048
     Dates: end: 20120603
  5. KETOPROFENE [Suspect]
     Route: 048
     Dates: start: 20120526, end: 20120526
  6. DICLOFENAC [Suspect]
     Route: 048
     Dates: start: 20120525, end: 20120525
  7. PENTOXIFYLLINE [Concomitant]
  8. DUOPLAVIN [Concomitant]
  9. TOCO [Concomitant]
  10. PANTOPRAZOLE [Concomitant]
  11. TIMOFEROL [Concomitant]
  12. DOLIPRANE [Concomitant]
  13. UVEDOSE [Concomitant]
  14. LOPERAMIDE [Concomitant]
  15. POLICOSANOL [Concomitant]
  16. Q10 [Concomitant]
  17. BOSWELLIA SERRATA [Concomitant]

REACTIONS (5)
  - Renal tubular necrosis [Recovered/Resolved]
  - Renal failure acute [Recovered/Resolved]
  - Blood creatinine increased [Recovered/Resolved]
  - Blood urea increased [Recovered/Resolved]
  - Hyperkalaemia [Recovered/Resolved]
